FAERS Safety Report 24348524 (Version 1)
Quarter: 2024Q3

REPORT INFORMATION
  Report Type: Spontaneous
  Country: US (occurrence: US)
  Receive Date: 20240923
  Receipt Date: 20240923
  Transmission Date: 20241017
  Serious: No
  Sender: AUROBINDO
  Company Number: US-AUROBINDO-AUR-APL-2024-026538

PATIENT
  Sex: Female

DRUGS (1)
  1. TAMOXIFEN CITRATE [Suspect]
     Active Substance: TAMOXIFEN CITRATE
     Indication: Prophylaxis
     Dosage: UNK
     Route: 065
     Dates: start: 202312

REACTIONS (2)
  - Lymphoid tissue hyperplasia [Unknown]
  - Product formulation issue [Unknown]
